FAERS Safety Report 8773375 (Version 1)
Quarter: 2012Q4

REPORT INFORMATION
  Report Type: 
  Country: IT (occurrence: IT)
  Receive Date: 20120907
  Receipt Date: 20120907
  Transmission Date: 20130627
  Serious: Yes (Other)
  Sender: FDA-Public Use
  Company Number: IT-ROCHE-1104159

PATIENT

DRUGS (18)
  1. MABTHERA [Suspect]
     Indication: BURKITT^S LYMPHOMA
     Route: 065
  2. MABTHERA [Suspect]
     Indication: HIV TEST POSITIVE
  3. METHYLPREDNISOLONE [Suspect]
     Indication: BURKITT^S LYMPHOMA
  4. METHYLPREDNISOLONE [Suspect]
     Indication: HIV TEST POSITIVE
  5. CYCLOPHOSPHAMIDE [Suspect]
     Indication: HIV TEST POSITIVE
  6. CYCLOPHOSPHAMIDE [Suspect]
     Indication: BURKITT^S LYMPHOMA
  7. VINCRISTINE [Suspect]
     Indication: HIV TEST POSITIVE
  8. VINCRISTINE [Suspect]
     Indication: BURKITT^S LYMPHOMA
  9. METHOTREXATE [Suspect]
     Indication: HIV TEST POSITIVE
  10. METHOTREXATE [Suspect]
     Indication: BURKITT^S LYMPHOMA
  11. ETOPOSIDE [Suspect]
     Indication: HIV TEST POSITIVE
  12. ETOPOSIDE [Suspect]
     Indication: BURKITT^S LYMPHOMA
  13. DOXORUBICIN [Suspect]
     Indication: HIV TEST POSITIVE
  14. DOXORUBICIN [Suspect]
     Indication: BURKITT^S LYMPHOMA
  15. CYTARABINE [Suspect]
     Indication: HIV TEST POSITIVE
  16. CYTARABINE [Suspect]
     Indication: BURKITT^S LYMPHOMA
  17. CISPLATIN [Suspect]
     Indication: HIV TEST POSITIVE
  18. CISPLATIN [Suspect]
     Indication: BURKITT^S LYMPHOMA

REACTIONS (4)
  - Haematotoxicity [Unknown]
  - Neutropenia [Unknown]
  - Bacterial infection [Unknown]
  - Cytomegalovirus infection [Unknown]
